FAERS Safety Report 4361636-X (Version None)
Quarter: 2004Q2

REPORT INFORMATION
  Report Type: 
  Country: None (occurrence: None)
  Receive Date: 20040521
  Receipt Date: 20040414
  Transmission Date: 20050107
  Serious: No
  Sender: FDA-Public Use
  Company Number: US-GLAXOSMITHKLINE-A0507175A

PATIENT
  Sex: Female

DRUGS (12)
  1. WELLBUTRIN XL [Suspect]
     Indication: DEPRESSION
     Dosage: 300MG PER DAY
     Route: 048
  2. SEROQUEL [Concomitant]
  3. ZOLOFT [Concomitant]
  4. ZYRTEC [Concomitant]
  5. XANAX [Concomitant]
  6. MOBIC [Concomitant]
  7. PROTONIX [Concomitant]
  8. ALBUTEROL [Concomitant]
  9. NEURONTIN [Concomitant]
  10. TRAZODONE HCL [Concomitant]
  11. COMPAZINE [Concomitant]
     Indication: NAUSEA
  12. PREDNISONE [Concomitant]
     Indication: ASTHMA

REACTIONS (3)
  - ABDOMINAL PAIN [None]
  - BACK PAIN [None]
  - NAUSEA [None]
